FAERS Safety Report 10206329 (Version 1)
Quarter: 2014Q2

REPORT INFORMATION
  Report Type: Spontaneous
  Country: GB (occurrence: GB)
  Receive Date: 20140530
  Receipt Date: 20140530
  Transmission Date: 20141212
  Serious: Yes (Hospitalization)
  Sender: FDA-Public Use
  Company Number: PHHY2014GB066340

PATIENT
  Age: 81 Year
  Sex: 0

DRUGS (1)
  1. EVEROLIMUS [Suspect]
     Indication: BREAST CANCER

REACTIONS (2)
  - Lethargy [Recovering/Resolving]
  - Dyspnoea [Recovering/Resolving]
